FAERS Safety Report 20797779 (Version 1)
Quarter: 2022Q2

REPORT INFORMATION
  Report Type: Spontaneous
  Country: US (occurrence: None)
  Receive Date: 20220506
  Receipt Date: 20220506
  Transmission Date: 20220720
  Serious: Yes (Hospitalization)
  Sender: FDA-Public Use
  Company Number: None

PATIENT
  Sex: Female

DRUGS (1)
  1. IBRANCE [Suspect]
     Active Substance: PALBOCICLIB
     Indication: Breast cancer female
     Dosage: 125MG DAILY ORAL??TO ON HOLD
     Route: 048
     Dates: start: 202203

REACTIONS (5)
  - Tongue blistering [None]
  - Tongue discomfort [None]
  - Pain [None]
  - Feeding disorder [None]
  - Therapy interrupted [None]
